FAERS Safety Report 8397157-7 (Version None)
Quarter: 2012Q2

REPORT INFORMATION
  Report Type: 
  Country: None (occurrence: None)
  Receive Date: 20120530
  Receipt Date: 20120518
  Transmission Date: 20120825
  Serious: Yes (Other)
  Sender: FDA-Public Use
  Company Number: JP-ROCHE-1071743

PATIENT
  Sex: Female

DRUGS (2)
  1. XOLAIR [Suspect]
     Indication: ASTHMA
     Route: 058
  2. XOLAIR [Suspect]
     Route: 058
     Dates: start: 20120308, end: 20120308

REACTIONS (10)
  - LOCAL SWELLING [None]
  - PRURITUS [None]
  - CHOKING SENSATION [None]
  - PALPITATIONS [None]
  - HYPOAESTHESIA ORAL [None]
  - BONE PAIN [None]
  - FEELING HOT [None]
  - SWELLING FACE [None]
  - OEDEMA [None]
  - DIZZINESS [None]
